FAERS Safety Report 16662926 (Version 2)
Quarter: 2019Q3

REPORT INFORMATION
  Report Type: Spontaneous
  Country: BR (occurrence: BR)
  Receive Date: 20190802
  Receipt Date: 20190830
  Transmission Date: 20191004
  Serious: Yes (Other)
  Sender: FDA-Public Use
  Company Number: BR-SA-2019SA204461

PATIENT
  Age: 23 Year
  Sex: Female

DRUGS (2)
  1. VITAMINS NOS [Concomitant]
     Active Substance: VITAMINS
     Indication: SUPPLEMENTATION THERAPY
     Dosage: UNK UNK, UNK
     Route: 065
  2. CLEXANE [Suspect]
     Active Substance: ENOXAPARIN SODIUM
     Indication: HYPERCOAGULATION
     Dosage: 1 INJECTION PER DAY EVERY DAY AT THE SAME TIME
     Route: 065
     Dates: start: 2019

REACTIONS (9)
  - Irritability [Unknown]
  - Exposure during pregnancy [Unknown]
  - Injection site pain [Unknown]
  - Product use in unapproved indication [Unknown]
  - Injection site haematoma [Unknown]
  - Medication error [Unknown]
  - Crying [Unknown]
  - Diabetic metabolic decompensation [Not Recovered/Not Resolved]
  - Arthropod sting [Unknown]

NARRATIVE: CASE EVENT DATE: 2019
